FAERS Safety Report 4702358-2 (Version None)
Quarter: 2005Q2

REPORT INFORMATION
  Report Type: 
  Country: None (occurrence: None)
  Receive Date: 20050629
  Receipt Date: 20040915
  Transmission Date: 20051028
  Serious: No
  Sender: FDA-Public Use
  Company Number: US-GLAXOSMITHKLINE-A0526108A

PATIENT
  Age: 10 Year
  Sex: Male

DRUGS (6)
  1. ALBUTEROL [Suspect]
     Indication: PNEUMONITIS
     Route: 055
     Dates: start: 20040910
  2. AMOXICILLIN [Suspect]
     Indication: DRUG USE FOR UNKNOWN INDICATION
     Route: 065
  3. CROMOLYN SODIUM [Concomitant]
  4. ANTIBIOTICS [Concomitant]
  5. PREDNISONE [Concomitant]
  6. CEFZIL [Concomitant]

REACTIONS (2)
  - DRUG INEFFECTIVE [None]
  - HYPERSENSITIVITY [None]
